FAERS Safety Report 7107716-7 (Version None)
Quarter: 2010Q4

REPORT INFORMATION
  Report Type: 
  Country: None (occurrence: None)
  Receive Date: 20101117
  Receipt Date: 20101111
  Transmission Date: 20110411
  Serious: Yes (Other)
  Sender: FDA-Public Use
  Company Number: TW-BRISTOL-MYERS SQUIBB COMPANY-15374663

PATIENT
  Age: 47 Year
  Sex: Female

DRUGS (3)
  1. CISPLATIN [Suspect]
     Indication: NASOPHARYNGEAL CANCER
     Dosage: RECEIVED 4 COURSES
  2. FLUOROURACIL [Suspect]
     Indication: NASOPHARYNGEAL CANCER
     Dosage: RECEIVED 4 COURSES
  3. RADIOTHERAPY [Suspect]
     Indication: NASOPHARYNGEAL CANCER
     Dosage: 1DF=7,440 CGY IN 62 FRACTIONS

REACTIONS (1)
  - VITH NERVE DISORDER [None]
